FAERS Safety Report 4533247-4 (Version None)
Quarter: 2005Q1

REPORT INFORMATION
  Report Type: 
  Country: None (occurrence: None)
  Receive Date: 20041206
  Receipt Date: 20040823
  Transmission Date: 20050727
  Serious: No
  Sender: FDA-Public Use
  Company Number: USA040876221

PATIENT
  Sex: Female

DRUGS (4)
  1. CYMBALTA [Suspect]
     Indication: FIBROMYALGIA
     Dosage: 30 MG DAY
     Dates: start: 20040817, end: 20040820
  2. SINGULAIR (MONTELUKAST) [Concomitant]
  3. PROCORT (HYDROCORTISONE) [Concomitant]
  4. NEURONTIN [Concomitant]

REACTIONS (2)
  - ASTHMA [None]
  - RASH [None]
